FAERS Safety Report 4382671-1 (Version None)
Quarter: 2004Q2

REPORT INFORMATION
  Report Type: 
  Country: None (occurrence: None)
  Receive Date: 20040622
  Receipt Date: 20040614
  Transmission Date: 20050107
  Serious: Yes (Hospitalization)
  Sender: FDA-Public Use
  Company Number: US-BRISTOL-MYERS SQUIBB COMPANY-12614897

PATIENT
  Age: 66 Year
  Sex: Male
  Weight: 77 kg

DRUGS (1)
  1. CARDIOLITE [Suspect]
     Indication: CARDIAC STRESS TEST
     Dates: start: 20040609

REACTIONS (3)
  - CIRCULATORY COLLAPSE [None]
  - COMA [None]
  - VENTRICULAR TACHYCARDIA [None]
